FAERS Safety Report 20157720 (Version 4)
Quarter: 2022Q2

REPORT INFORMATION
  Report Type: Spontaneous
  Country: JP (occurrence: JP)
  Receive Date: 20211207
  Receipt Date: 20220617
  Transmission Date: 20220720
  Serious: Yes (Death, Hospitalization, Other)
  Sender: FDA-Public Use
  Company Number: JP-NAPPMUNDI-GBR-2021-0093144

PATIENT
  Age: 77 Year
  Sex: Male

DRUGS (25)
  1. OXYCONTIN [Suspect]
     Active Substance: OXYCODONE HYDROCHLORIDE
     Indication: Cancer pain
     Dosage: 60 MILLIGRAM, DAILY
     Route: 048
     Dates: end: 20211019
  2. OXYCONTIN [Suspect]
     Active Substance: OXYCODONE HYDROCHLORIDE
     Dosage: 80 MILLIGRAM, DAILY
     Route: 048
     Dates: start: 20211014
  3. OXYCONTIN [Suspect]
     Active Substance: OXYCODONE HYDROCHLORIDE
     Dosage: 120 MILLIGRAM, DAILY
     Route: 048
     Dates: start: 20211011
  4. OXYCONTIN [Suspect]
     Active Substance: OXYCODONE HYDROCHLORIDE
     Dosage: 160 MILLIGRAM, DAILY
     Route: 048
     Dates: start: 20210419
  5. OXYCODONE [Suspect]
     Active Substance: OXYCODONE
     Indication: Cancer pain
     Dosage: 12 MG, DAILY
     Route: 058
     Dates: start: 20211026
  6. OXYCODONE [Suspect]
     Active Substance: OXYCODONE
     Indication: Rectal cancer
     Dosage: 18 MILLIGRAM, DAILY
     Route: 058
     Dates: start: 20211025
  7. OXYCODONE [Suspect]
     Active Substance: OXYCODONE
     Dosage: 24 MILLIGRAM, DAILY
     Route: 058
     Dates: start: 20211023
  8. OXYCODONE [Suspect]
     Active Substance: OXYCODONE
     Dosage: 36 MILLIGRAM, DAILY
     Route: 058
     Dates: start: 20211022
  9. OXYCODONE [Suspect]
     Active Substance: OXYCODONE
     Dosage: 48 MILLIGRAM, DAILY
     Route: 058
     Dates: start: 20211019
  10. OXYCODONE [Suspect]
     Active Substance: OXYCODONE
     Dosage: 18 MILLIGRAM, DAILY
     Route: 058
     Dates: start: 20211025
  11. METHADONE HYDROCHLORIDE [Suspect]
     Active Substance: METHADONE HYDROCHLORIDE
     Indication: Cancer pain
     Dosage: 15 MG, DAILY
     Route: 048
     Dates: start: 20211027
  12. METHADONE HYDROCHLORIDE [Suspect]
     Active Substance: METHADONE HYDROCHLORIDE
     Dosage: 30 MG, DAILY
     Route: 048
     Dates: start: 20211014
  13. METHADONE HYDROCHLORIDE [Suspect]
     Active Substance: METHADONE HYDROCHLORIDE
     Dosage: 20 MG, DAILY
     Route: 048
     Dates: start: 20211008
  14. PREGABALIN [Concomitant]
     Active Substance: PREGABALIN
     Indication: Rectal cancer
     Dosage: 150 MG, DAILY
     Route: 065
  15. PREGABALIN [Concomitant]
     Active Substance: PREGABALIN
     Dosage: 150 MG, DAILY
     Route: 048
     Dates: start: 20180813
  16. ASPIRIN [Concomitant]
     Active Substance: ASPIRIN
     Indication: Myocardial ischaemia
     Dosage: UNK
     Route: 065
     Dates: start: 20211018
  17. KETALAR [Concomitant]
     Active Substance: KETAMINE HYDROCHLORIDE
     Indication: Product used for unknown indication
     Dosage: UNK
     Route: 065
  18. KETALAR [Concomitant]
     Active Substance: KETAMINE HYDROCHLORIDE
     Dosage: UNK
     Route: 065
  19. KETALAR [Concomitant]
     Active Substance: KETAMINE HYDROCHLORIDE
     Dosage: UNK
     Route: 065
  20. KETALAR [Concomitant]
     Active Substance: KETAMINE HYDROCHLORIDE
     Dosage: UNK
     Route: 065
  21. TRYPTANOL                          /00002202/ [Concomitant]
     Indication: Product used for unknown indication
     Dosage: UNK
     Route: 065
  22. AMITRIPTYLINE [Concomitant]
     Active Substance: AMITRIPTYLINE
     Indication: Product used for unknown indication
     Dosage: UNK
     Route: 065
  23. ACETAMINOPHEN [Concomitant]
     Active Substance: ACETAMINOPHEN
     Indication: Rectal cancer
     Dosage: 2000 MILLIGRAM, DAILY
     Route: 048
     Dates: start: 20211005
  24. AMITIZA [Concomitant]
     Active Substance: LUBIPROSTONE
     Indication: Constipation
     Dosage: 48 MILLIGRAM, DAILY
     Route: 048
     Dates: start: 20200120
  25. ROZEREM [Concomitant]
     Active Substance: RAMELTEON
     Indication: Insomnia
     Dosage: 8 MILLIGRAM, DAILY
     Route: 048
     Dates: start: 20200427, end: 20211209

REACTIONS (1)
  - Electrocardiogram QT prolonged [Recovered/Resolved]

NARRATIVE: CASE EVENT DATE: 20211025
